FAERS Safety Report 21950910 (Version 1)
Quarter: 2023Q1

REPORT INFORMATION
  Report Type: Spontaneous
  Country: US (occurrence: US)
  Receive Date: 20230203
  Receipt Date: 20230203
  Transmission Date: 20230418
  Serious: Yes (Other)
  Sender: FDA-Public Use
  Company Number: US-ARBOR PHARMACEUTICALS, LLC-US-2023ARB000147

PATIENT
  Sex: Female

DRUGS (1)
  1. NYMALIZE [Suspect]
     Active Substance: NIMODIPINE
     Indication: Product used for unknown indication
     Dosage: UNK

REACTIONS (1)
  - Foreign body aspiration [Unknown]
